FAERS Safety Report 19125293 (Version 1)
Quarter: 2021Q2

REPORT INFORMATION
  Report Type: Report from Study
  Country: CA (occurrence: CA)
  Receive Date: 20210412
  Receipt Date: 20210412
  Transmission Date: 20210717
  Serious: Yes (Hospitalization)
  Sender: FDA-Public Use
  Company Number: CA-BAUSCH-BL-2021-011702

PATIENT
  Age: 65 Year
  Sex: Female

DRUGS (4)
  1. UMECLIDINIUM BROMIDE [Suspect]
     Active Substance: UMECLIDINIUM BROMIDE
     Indication: PRODUCT USED FOR UNKNOWN INDICATION
     Route: 065
  2. INDACATEROL MALEATE [Suspect]
     Active Substance: INDACATEROL MALEATE
     Indication: PRODUCT USED FOR UNKNOWN INDICATION
     Route: 065
  3. ALVESCO [Suspect]
     Active Substance: CICLESONIDE
     Indication: PRODUCT USED FOR UNKNOWN INDICATION
     Dosage: METERED DOSE
  4. SALBUTAMOL SULFATE [Suspect]
     Active Substance: ALBUTEROL SULFATE
     Indication: PRODUCT USED FOR UNKNOWN INDICATION
     Route: 065

REACTIONS (4)
  - Wheezing [Unknown]
  - Loss of personal independence in daily activities [Unknown]
  - Asthma [Unknown]
  - Dyspnoea [Unknown]
